FAERS Safety Report 18318373 (Version 1)
Quarter: 2020Q3

REPORT INFORMATION
  Report Type: Spontaneous
  Country: DE (occurrence: DE)
  Receive Date: 20200928
  Receipt Date: 20200928
  Transmission Date: 20201103
  Serious: Yes (Hospitalization, Other)
  Sender: FDA-Public Use
  Company Number: DE-TEVA-2020-DE-1831807

PATIENT
  Age: 68 Year
  Sex: Female

DRUGS (4)
  1. RAMIPRIL/HYDROCHLOROTHIAZIDE [Suspect]
     Active Substance: HYDROCHLOROTHIAZIDE\RAMIPRIL
     Dosage: 1 DOSAGE FORMS DAILY; 25|5 MG, 1?0?0?0
     Route: 065
  2. LETROZOLE. [Suspect]
     Active Substance: LETROZOLE
     Dosage: 2.5 MILLIGRAM DAILY;  0?0?1?0
     Route: 065
  3. RAMIPRIL. [Concomitant]
     Active Substance: RAMIPRIL
     Dosage: 5 MILLIGRAM DAILY; 0?0?1?0
  4. METOPROLOL. [Concomitant]
     Active Substance: METOPROLOL
     Dosage: 100 MILLIGRAM DAILY; 1?0?1?0

REACTIONS (4)
  - Nausea [Unknown]
  - General physical health deterioration [Unknown]
  - Dizziness [Unknown]
  - Gastritis erosive [Unknown]

NARRATIVE: CASE EVENT DATE: 2020
